FAERS Safety Report 7172649-7 (Version None)
Quarter: 2010Q4

REPORT INFORMATION
  Report Type: 
  Country: None (occurrence: None)
  Receive Date: 20101217
  Receipt Date: 20100211
  Transmission Date: 20110411
  Serious: No
  Sender: FDA-Public Use
  Company Number: US-AMGEN-TCS392439

PATIENT

DRUGS (2)
  1. ENBREL [Suspect]
     Indication: PSORIATIC ARTHROPATHY
     Dosage: 50 MG, QWK
     Route: 058
     Dates: start: 20071112
  2. ENBREL [Suspect]
     Indication: PSORIASIS

REACTIONS (17)
  - ANXIETY [None]
  - ARTHRALGIA [None]
  - COUGH [None]
  - DYSPHAGIA [None]
  - HOT FLUSH [None]
  - INFLUENZA LIKE ILLNESS [None]
  - INJECTION SITE DISCOMFORT [None]
  - INJECTION SITE HAEMATOMA [None]
  - INJECTION SITE REACTION [None]
  - LETHARGY [None]
  - OOPHORECTOMY [None]
  - OROPHARYNGEAL PAIN [None]
  - OSTEOPENIA [None]
  - OSTEOPOROSIS [None]
  - PSORIASIS [None]
  - SINUSITIS [None]
  - STRESS [None]
